FAERS Safety Report 24529088 (Version 1)
Quarter: 2024Q4

REPORT INFORMATION
  Report Type: Report from Study
  Country: GB (occurrence: GB)
  Receive Date: 20241021
  Receipt Date: 20241021
  Transmission Date: 20250115
  Serious: Yes (Death)
  Sender: ROCHE
  Company Number: GB-ROCHE-3475469

PATIENT
  Sex: Male

DRUGS (1)
  1. ESBRIET [Suspect]
     Active Substance: PIRFENIDONE
     Indication: Product used for unknown indication
     Route: 065
     Dates: start: 202307

REACTIONS (3)
  - Mobility decreased [Unknown]
  - Cough [Unknown]
  - Death [Fatal]
